FAERS Safety Report 23460942 (Version 1)
Quarter: 2024Q1

REPORT INFORMATION
  Report Type: Spontaneous
  Country: US (occurrence: US)
  Receive Date: 20240131
  Receipt Date: 20240131
  Transmission Date: 20240410
  Serious: No
  Sender: FDA-Public Use
  Company Number: US-KYOWAKIRIN-2024KK001510

PATIENT

DRUGS (11)
  1. CRYSVITA [Suspect]
     Active Substance: BUROSUMAB-TWZA
     Indication: Hereditary hypophosphataemic rickets
     Dosage: 45 MG, 1X/2 WEEKS (EVERY 14 DAYS)
     Route: 058
     Dates: start: 20190417
  2. CRYSVITA [Suspect]
     Active Substance: BUROSUMAB-TWZA
     Dosage: 45 MG, 1X/2 WEEKS (EVERY 14 DAYS)
     Route: 058
     Dates: start: 20230212
  3. CRYSVITA [Suspect]
     Active Substance: BUROSUMAB-TWZA
     Dosage: 45 MG, 1X/2 WEEKS (EVERY 14 DAYS)
     Route: 058
     Dates: start: 20230623
  4. CRYSVITA [Suspect]
     Active Substance: BUROSUMAB-TWZA
     Dosage: 45 MG, 1X/2 WEEKS (EVERY 14 DAYS)
     Route: 058
     Dates: start: 20240105
  5. CRYSVITA [Suspect]
     Active Substance: BUROSUMAB-TWZA
     Dosage: 45 MG, 1X/2 WEEKS (EVERY 14 DAYS)
     Route: 058
     Dates: start: 20240124
  6. CRYSVITA [Suspect]
     Active Substance: BUROSUMAB-TWZA
     Indication: Hereditary hypophosphataemic rickets
     Dosage: 45 MG, 1X/2 WEEKS (EVERY 14 DAYS)
     Route: 058
     Dates: start: 20190417
  7. CRYSVITA [Suspect]
     Active Substance: BUROSUMAB-TWZA
     Dosage: 45 MG, 1X/2 WEEKS (EVERY 14 DAYS)
     Route: 058
     Dates: start: 20230212
  8. CRYSVITA [Suspect]
     Active Substance: BUROSUMAB-TWZA
     Dosage: 45 MG, 1X/2 WEEKS (EVERY 14 DAYS)
     Route: 058
     Dates: start: 20230623
  9. CRYSVITA [Suspect]
     Active Substance: BUROSUMAB-TWZA
     Dosage: 45 MG, 1X/2 WEEKS (EVERY 14 DAYS)
     Route: 058
     Dates: start: 20240105
  10. CRYSVITA [Suspect]
     Active Substance: BUROSUMAB-TWZA
     Dosage: 45 MG, 1X/2 WEEKS (EVERY 14 DAYS)
     Route: 058
     Dates: start: 20240124
  11. CRYSVITA [Concomitant]
     Active Substance: BUROSUMAB-TWZA
     Indication: Product used for unknown indication
     Dosage: UNK
     Route: 065

REACTIONS (1)
  - Inappropriate schedule of product administration [Recovered/Resolved]

NARRATIVE: CASE EVENT DATE: 20240105
